FAERS Safety Report 7811101-X (Version None)
Quarter: 2011Q4

REPORT INFORMATION
  Report Type: 
  Country: None (occurrence: None)
  Receive Date: 20111013
  Receipt Date: 20111007
  Transmission Date: 20120403
  Serious: Yes (Other)
  Sender: FDA-Public Use
  Company Number: NL-TYCO HEALTHCARE/MALLINCKRODT-T201101963

PATIENT
  Age: 39 Year
  Sex: Male

DRUGS (2)
  1. TECHNESCAN [Suspect]
     Indication: BONE SCAN
     Dosage: UNK, SINGLE
     Route: 042
     Dates: start: 20110930, end: 20110930
  2. ULTRA-TECHNEKOW FM [Suspect]
     Indication: BONE SCAN
     Dosage: 550 MBQ, SINGLE
     Route: 042
     Dates: start: 20110930, end: 20110930

REACTIONS (3)
  - INJECTION SITE INFLAMMATION [None]
  - INJECTION SITE EXTRAVASATION [None]
  - DRUG ADMINISTRATION ERROR [None]
